FAERS Safety Report 9407923 (Version 2)
Quarter: 2013Q3

REPORT INFORMATION
  Report Type: Spontaneous
  Country: JP (occurrence: JP)
  Receive Date: 20130718
  Receipt Date: 20130906
  Transmission Date: 20140515
  Serious: Yes (Other)
  Sender: FDA-Public Use
  Company Number: JP-PFIZER INC-2013209645

PATIENT
  Age: 79 Year
  Sex: Male

DRUGS (4)
  1. ADRIACIN [Suspect]
     Indication: LYMPHOMA
     Dosage: UNK MG, UNK
     Route: 042
     Dates: start: 20130702
  2. ENDOXAN [Concomitant]
     Dosage: 750 MG, 1X/DAY
     Route: 041
  3. ONCOVIN [Concomitant]
     Dosage: UNK
     Route: 041
  4. RITUXAN [Concomitant]
     Dosage: 375 MG, 1X/DAY
     Route: 041

REACTIONS (3)
  - Enterocolitis [Recovering/Resolving]
  - Enteritis [Recovering/Resolving]
  - Enteritis [Recovering/Resolving]
